FAERS Safety Report 4479102-X (Version None)
Quarter: 2004Q3

REPORT INFORMATION
  Report Type: 
  Country: None (occurrence: None)
  Receive Date: 20040923
  Receipt Date: 20040819
  Transmission Date: 20050211
  Serious: Yes (Hospitalization)
  Sender: FDA-Public Use
  Company Number: 208554

PATIENT
  Age: 53 Year
  Sex: Female
  Weight: 66.2 kg

DRUGS (5)
  1. AVASTIN [Suspect]
     Indication: COLON CANCER METASTATIC
     Dosage: 323 MG, INTRAVENOUS
     Route: 042
     Dates: start: 20040430
  2. ALEVE [Concomitant]
  3. CELEBREX [Concomitant]
  4. COUMADIN [Concomitant]
  5. XELODA [Concomitant]

REACTIONS (2)
  - LARGE INTESTINE PERFORATION [None]
  - PERITONITIS [None]
